FAERS Safety Report 10031350 (Version 1)
Quarter: 2014Q1

REPORT INFORMATION
  Report Type: Spontaneous
  Country: US (occurrence: US)
  Receive Date: 20140324
  Receipt Date: 20140324
  Transmission Date: 20141002
  Serious: Yes (Other)
  Sender: FDA-Public Use
  Company Number: US-AMGEN-USASP2014019643

PATIENT
  Age: 70 Year
  Sex: Male
  Weight: 108.84 kg

DRUGS (2)
  1. ENBREL [Suspect]
     Indication: RHEUMATOID ARTHRITIS
     Dosage: 50 MG, QWK
     Route: 058
     Dates: start: 20120201
  2. PREDNISONE [Concomitant]
     Dosage: UNK

REACTIONS (2)
  - Dialysis [Unknown]
  - Nasal congestion [Not Recovered/Not Resolved]
